FAERS Safety Report 11569411 (Version 1)
Quarter: 2015Q3

REPORT INFORMATION
  Report Type: Spontaneous
  Country: US (occurrence: None)
  Receive Date: 20150928
  Receipt Date: 20150928
  Transmission Date: 20151125
  Serious: No
  Sender: FDA-Public Use
  Company Number: None

PATIENT
  Age: 55 Year
  Sex: Female
  Weight: 72.58 kg

DRUGS (10)
  1. GABAPENTIN 300 MG [Suspect]
     Active Substance: GABAPENTIN
     Indication: NEUROPATHY PERIPHERAL
     Dosage: 3AM; 2 AFTERNOON, 2
     Route: 048
     Dates: start: 20150226, end: 20150926
  2. GABAPENTIN 300 MG [Suspect]
     Active Substance: GABAPENTIN
     Indication: PARAESTHESIA
     Dosage: 3AM; 2 AFTERNOON, 2
     Route: 048
     Dates: start: 20150226, end: 20150926
  3. DICLOFENAC [Concomitant]
     Active Substance: DICLOFENAC
  4. GABAPENTIN 300 MG [Suspect]
     Active Substance: GABAPENTIN
     Indication: TENDONITIS
     Dosage: 3AM; 2 AFTERNOON, 2
     Route: 048
     Dates: start: 20150226, end: 20150926
  5. LEVOTHYROXINE. [Concomitant]
     Active Substance: LEVOTHYROXINE
  6. VITAMIN D2 [Concomitant]
     Active Substance: ERGOCALCIFEROL
  7. GABAPENTIN 300 MG [Suspect]
     Active Substance: GABAPENTIN
     Indication: HYPOAESTHESIA
     Dosage: 3AM; 2 AFTERNOON, 2
     Route: 048
     Dates: start: 20150226, end: 20150926
  8. GABAPENTIN 300 MG [Suspect]
     Active Substance: GABAPENTIN
     Indication: CARPAL TUNNEL SYNDROME
     Dosage: 3AM; 2 AFTERNOON, 2
     Route: 048
     Dates: start: 20150226, end: 20150926
  9. ESTROVEN [Concomitant]
     Active Substance: DIETARY SUPPLEMENT
  10. GABAPENTIN 300 MG [Suspect]
     Active Substance: GABAPENTIN
     Indication: CUBITAL TUNNEL SYNDROME
     Dosage: 3AM; 2 AFTERNOON, 2
     Route: 048
     Dates: start: 20150226, end: 20150926

REACTIONS (2)
  - Aphasia [None]
  - Amnesia [None]

NARRATIVE: CASE EVENT DATE: 20150926
